FAERS Safety Report 7438297-6 (Version None)
Quarter: 2011Q2

REPORT INFORMATION
  Report Type: 
  Country: None (occurrence: None)
  Receive Date: 20110421
  Receipt Date: 20110421
  Transmission Date: 20111010
  Serious: Yes (Death)
  Sender: FDA-Public Use
  Company Number: None

PATIENT
  Age: 69 Year
  Sex: Female

DRUGS (6)
  1. LASIX [Concomitant]
  2. PEPCID [Concomitant]
  3. AYCLOVIR [Concomitant]
  4. EPOETIN [Concomitant]
  5. RITUXAN [Concomitant]
  6. REVLIMID [Suspect]
     Indication: MYELODYSPLASTIC SYNDROME
     Dosage: 5MG DAILY ORALLY
     Route: 048
     Dates: start: 20100601, end: 20100801

REACTIONS (2)
  - FATIGUE [None]
  - PLATELET COUNT DECREASED [None]
